FAERS Safety Report 23456589 (Version 1)
Quarter: 2024Q1

REPORT INFORMATION
  Report Type: Spontaneous
  Country: JP (occurrence: JP)
  Receive Date: 20240130
  Receipt Date: 20240130
  Transmission Date: 20240410
  Serious: Yes (Hospitalization, Other)
  Sender: FDA-Public Use
  Company Number: JP-OTSUKA-2024_001780

PATIENT
  Age: 5 Decade
  Sex: Male

DRUGS (10)
  1. SAMSCA [Suspect]
     Active Substance: TOLVAPTAN
     Indication: Dilated cardiomyopathy
     Dosage: 7.5 MG/DAY
     Route: 065
  2. SAMSCA [Suspect]
     Active Substance: TOLVAPTAN
     Indication: Cardiac failure
     Dosage: 3.75 MG/DAY
     Route: 065
  3. CARVEDILOL [Concomitant]
     Active Substance: CARVEDILOL
     Indication: Dilated cardiomyopathy
     Dosage: 5 MG/DAY
     Route: 065
  4. CARVEDILOL [Concomitant]
     Active Substance: CARVEDILOL
     Indication: Cardiac failure
     Dosage: 10 MG/DAY
     Route: 065
  5. SPIRONOLACTONE [Concomitant]
     Active Substance: SPIRONOLACTONE
     Indication: Dilated cardiomyopathy
     Dosage: 25 MG/DAY
     Route: 065
  6. SPIRONOLACTONE [Concomitant]
     Active Substance: SPIRONOLACTONE
     Indication: Cardiac failure
  7. FUROSEMIDE [Concomitant]
     Active Substance: FUROSEMIDE
     Indication: Dilated cardiomyopathy
     Dosage: 20 MG/DAY
     Route: 065
  8. FUROSEMIDE [Concomitant]
     Active Substance: FUROSEMIDE
     Indication: Cardiac failure
  9. MILRINONE [Concomitant]
     Active Substance: MILRINONE
     Indication: Dilated cardiomyopathy
     Dosage: 0.12 GAMMA
     Route: 065
  10. MILRINONE [Concomitant]
     Active Substance: MILRINONE
     Indication: Cardiac failure

REACTIONS (5)
  - Low cardiac output syndrome [Unknown]
  - Pericardial effusion [Unknown]
  - Cardiac failure [Unknown]
  - Blood pressure decreased [Unknown]
  - Underdose [Unknown]
